FAERS Safety Report 5304468-8 (Version None)
Quarter: 2007Q2

REPORT INFORMATION
  Report Type: 
  Country: None (occurrence: None)
  Receive Date: 20070423
  Receipt Date: 20070418
  Transmission Date: 20071010
  Serious: Yes (Hospitalization, Other)
  Sender: FDA-Public Use
  Company Number: JP-GENENTECH-239639

PATIENT
  Age: 65 Year
  Sex: Male

DRUGS (3)
  1. ACTIVASE [Suspect]
     Indication: CEREBRAL ARTERY EMBOLISM
     Dosage: 30.7 ML, SINGLE
     Route: 042
     Dates: start: 20070404, end: 20070404
  2. LR [Concomitant]
     Indication: DRUG USE FOR UNKNOWN INDICATION
     Dates: start: 20070404
  3. ASPIRIN [Concomitant]
     Indication: ANTICOAGULANT THERAPY
     Dates: start: 20070404

REACTIONS (1)
  - BRAIN HERNIATION [None]
